FAERS Safety Report 8559978-7 (Version None)
Quarter: 2012Q3

REPORT INFORMATION
  Report Type: 
  Country: None (occurrence: None)
  Receive Date: 20120802
  Receipt Date: 20120725
  Transmission Date: 20120928
  Serious: Yes (Hospitalization)
  Sender: FDA-Public Use
  Company Number: IT-BRISTOL-MYERS SQUIBB COMPANY-16801755

PATIENT
  Age: 51 Year
  Sex: Male

DRUGS (3)
  1. ZIAGEN [Concomitant]
     Dosage: ZIAGEN '300MG TAB'
  2. COUMADIN [Suspect]
     Indication: ATRIAL FIBRILLATION
     Dosage: INTERRUPTED ON 20JUN12 COUMADIN TABS 5 MG
     Route: 048
     Dates: start: 20050228
  3. VIREAD [Concomitant]
     Dosage: VIREAD '245MG TAB'

REACTIONS (2)
  - HAEMATOMA [None]
  - FALL [None]
